FAERS Safety Report 4882759-2 (Version None)
Quarter: 2005Q4

REPORT INFORMATION
  Report Type: 
  Country: None (occurrence: None)
  Receive Date: 20051201
  Receipt Date: 20050916
  Transmission Date: 20060501
  Serious: No
  Sender: FDA-Public Use
  Company Number: 2005PV002194

PATIENT
  Age: 60 Year
  Sex: Male
  Weight: 138.3471 kg

DRUGS (12)
  1. BYETTA [Suspect]
     Indication: DIABETES MELLITUS NON-INSULIN-DEPENDENT
     Dosage: 5 MCG; BID; SC; SEE IMAGE
     Route: 058
     Dates: start: 20050701, end: 20050905
  2. BYETTA [Suspect]
     Indication: DIABETES MELLITUS NON-INSULIN-DEPENDENT
     Dosage: 5 MCG; BID; SC; SEE IMAGE
     Route: 058
     Dates: start: 20050906
  3. TOPROL-XL [Concomitant]
  4. ALLOPURINOL [Concomitant]
  5. CLORAZEPATE DIPOTASSIUM [Concomitant]
  6. ASA ARTHRITIS STRENGTH [Concomitant]
  7. ASPIRIN [Concomitant]
  8. GLYBURIDE [Concomitant]
  9. GLUCOPHAGE [Concomitant]
  10. ENALAPRIL [Concomitant]
  11. LASIX [Concomitant]
  12. ZOCOR [Concomitant]

REACTIONS (4)
  - BLOOD PRESSURE INCREASED [None]
  - CONSTIPATION [None]
  - IRRITABILITY [None]
  - NAUSEA [None]
